FAERS Safety Report 10164937 (Version 1)
Quarter: 2014Q2

REPORT INFORMATION
  Report Type: Spontaneous
  Country: US (occurrence: US)
  Receive Date: 20140510
  Receipt Date: 20140510
  Transmission Date: 20141212
  Serious: No
  Sender: FDA-Public Use
  Company Number: US-BRISTOL-MYERS SQUIBB COMPANY-19629526

PATIENT
  Sex: Male
  Weight: 88.43 kg

DRUGS (4)
  1. BYDUREON [Suspect]
  2. LEVEMIR [Suspect]
  3. NORVASC [Concomitant]
  4. LOSARTAN POTASSIUM [Concomitant]

REACTIONS (1)
  - Weight decreased [Not Recovered/Not Resolved]
